FAERS Safety Report 5291332-6 (Version None)
Quarter: 2007Q2

REPORT INFORMATION
  Report Type: 
  Country: None (occurrence: None)
  Receive Date: 20070403
  Receipt Date: 20070323
  Transmission Date: 20071010
  Serious: Yes (Other)
  Sender: FDA-Public Use
  Company Number: 2007JP001171

PATIENT
  Age: 44 Year
  Sex: Male

DRUGS (3)
  1. PROGRAF [Suspect]
     Indication: CORD BLOOD TRANSPLANT THERAPY
  2. METHOTREXATE (METHOTREXATE SODIUM) [Concomitant]
  3. MYCOPHENOLATE MOFETIL [Concomitant]

REACTIONS (2)
  - CRYPTOGENIC ORGANISING PNEUMONIA [None]
  - ENCEPHALITIS HERPES [None]
